FAERS Safety Report 15549010 (Version 1)
Quarter: 2018Q4

REPORT INFORMATION
  Report Type: Spontaneous
  Country: PL (occurrence: PL)
  Receive Date: 20181025
  Receipt Date: 20181025
  Transmission Date: 20190205
  Serious: Yes (Other)
  Sender: FDA-Public Use
  Company Number: PL-BAXTER-2018BAX026352

PATIENT
  Age: 90 Year
  Sex: Female

DRUGS (5)
  1. ENDOXAN [Suspect]
     Active Substance: CYCLOPHOSPHAMIDE
     Indication: DIFFUSE LARGE B-CELL LYMPHOMA
     Dosage: UNK UNK, Q3WK, 4 CYCLES, DOSE: 1 (UNITS NOT REPORTED)
     Route: 065
  2. RITUXIMAB. [Suspect]
     Active Substance: RITUXIMAB
     Indication: DIFFUSE LARGE B-CELL LYMPHOMA
     Dosage: UNK UNK, Q3WK, 4 CYCLES, DOSE: 1 (UNITS NOT REPORTED)
     Route: 065
  3. PREDNISONE. [Suspect]
     Active Substance: PREDNISONE
     Indication: DIFFUSE LARGE B-CELL LYMPHOMA
     Dosage: UNK UNK, Q3WK, 4 CYCLES, DOSE: 1 (UNITS NOT REPORTED)
     Route: 065
  4. NEULASTA [Suspect]
     Active Substance: PEGFILGRASTIM
     Indication: PRODUCT USED FOR UNKNOWN INDICATION
     Dosage: 6 MG, AFTER CHEMO
     Route: 065
  5. VINCRISTINE [Suspect]
     Active Substance: VINCRISTINE
     Indication: DIFFUSE LARGE B-CELL LYMPHOMA
     Dosage: UNK UNK, Q3WK, 4 CYCLES, DOSE: 1 (UNITS NOT REPORTED)
     Route: 065

REACTIONS (5)
  - Ejection fraction decreased [Unknown]
  - Prerenal failure [Unknown]
  - Hyperkalaemia [Unknown]
  - Anaemia [Unknown]
  - Blood creatinine decreased [Unknown]
